FAERS Safety Report 9763242 (Version 1)
Quarter: 2013Q4

REPORT INFORMATION
  Report Type: Spontaneous
  Country: US (occurrence: US)
  Receive Date: 20131216
  Receipt Date: 20131216
  Transmission Date: 20140711
  Serious: No
  Sender: FDA-Public Use
  Company Number: US-BIOGENIDEC-2013BI104005

PATIENT
  Age: 59 Year
  Sex: Female

DRUGS (2)
  1. TECFIDERA [Suspect]
     Indication: MULTIPLE SCLEROSIS
     Route: 048
     Dates: start: 20130714
  2. IBUPROFEN [Concomitant]
     Dates: start: 20131014

REACTIONS (5)
  - Nasal congestion [Unknown]
  - Sneezing [Unknown]
  - Upper respiratory tract congestion [Unknown]
  - Abdominal discomfort [Recovered/Resolved]
  - Vomiting [Recovered/Resolved]
